FAERS Safety Report 9031050 (Version 1)
Quarter: 2013Q1

REPORT INFORMATION
  Report Type: Spontaneous
  Country: AR (occurrence: AR)
  Receive Date: 20130123
  Receipt Date: 20130123
  Transmission Date: 20140127
  Serious: Yes (Death)
  Sender: FDA-Public Use
  Company Number: AR-B.I. PHARMACEUTICALS,INC./RIDGEFIELD-2013-RA-00009RA

PATIENT
  Age: 58 Year
  Sex: Male

DRUGS (1)
  1. PRADAXA [Suspect]
     Indication: CORONARY ARTERY DISEASE
     Dosage: 300 MG
     Route: 048
     Dates: start: 201112, end: 20121216

REACTIONS (1)
  - Head injury [Fatal]
